FAERS Safety Report 5829622-8 (Version None)
Quarter: 2008Q3

REPORT INFORMATION
  Report Type: 
  Country: None (occurrence: None)
  Receive Date: 20080729
  Receipt Date: 20080718
  Transmission Date: 20090109
  Serious: Yes (Hospitalization)
  Sender: FDA-Public Use
  Company Number: 2008BI018106

PATIENT
  Age: 49 Year
  Sex: Male
  Weight: 115.6672 kg

DRUGS (2)
  1. AVONEX [Suspect]
     Indication: MULTIPLE SCLEROSIS
     Dosage: 30 UG;QW;IM, 30 UG;QW;IM
     Route: 030
     Dates: start: 20000101, end: 20030101
  2. AVONEX [Suspect]
     Indication: MULTIPLE SCLEROSIS
     Dosage: 30 UG;QW;IM, 30 UG;QW;IM
     Route: 030
     Dates: start: 20030101

REACTIONS (2)
  - HYPOAESTHESIA [None]
  - JOINT SWELLING [None]
